FAERS Safety Report 15155817 (Version 1)
Quarter: 2018Q3

REPORT INFORMATION
  Report Type: Spontaneous
  Country: DE (occurrence: DE)
  Receive Date: 20180717
  Receipt Date: 20180717
  Transmission Date: 20181010
  Serious: Yes (Other)
  Sender: FDA-Public Use
  Company Number: DE-US WORLDMEDS, LLC-STA_00018058

PATIENT
  Sex: Female
  Weight: 55 kg

DRUGS (8)
  1. PANTOPRAZOL 40 [Concomitant]
     Active Substance: PANTOPRAZOLE SODIUM
  2. MADOPAR DEPOT [Concomitant]
     Active Substance: BENSERAZIDE HYDROCHLORIDE\LEVODOPA
     Indication: PARKINSON^S DISEASE
  3. MIRTAZAPIN 45 [Concomitant]
  4. LEVOTHYROXINE\THYROXINE [Concomitant]
     Active Substance: LEVOTHYROXINE
  5. MACROGOL [Concomitant]
     Active Substance: POLYETHYLENE GLYCOLS
  6. MADOPAR LT [Concomitant]
     Active Substance: BENSERAZIDE HYDROCHLORIDE\LEVODOPA
     Indication: PARKINSON^S DISEASE
  7. MADOPAR 50 [Concomitant]
     Indication: PARKINSON^S DISEASE
     Dosage: + 2X0.5 TBL/D
     Route: 048
  8. APOMORPHINE HYDROCHLORIDE [Suspect]
     Active Substance: APOMORPHINE HYDROCHLORIDE
     Indication: PARKINSON^S DISEASE
     Route: 058
     Dates: start: 20151119

REACTIONS (2)
  - Injection site necrosis [Not Recovered/Not Resolved]
  - Injection site erythema [Not Recovered/Not Resolved]
